FAERS Safety Report 19116845 (Version 3)
Quarter: 2021Q3

REPORT INFORMATION
  Report Type: Spontaneous
  Country: US (occurrence: US)
  Receive Date: 20210409
  Receipt Date: 20210720
  Transmission Date: 20211014
  Serious: No
  Sender: FDA-Public Use
  Company Number: US-JNJFOC-20210408832

PATIENT
  Sex: Female

DRUGS (1)
  1. CONCERTA [Suspect]
     Active Substance: METHYLPHENIDATE HYDROCHLORIDE
     Indication: PRODUCT USED FOR UNKNOWN INDICATION
     Route: 065

REACTIONS (6)
  - Psychomotor hyperactivity [Unknown]
  - Irritability [Unknown]
  - Therapeutic response delayed [Unknown]
  - Therapeutic product effect decreased [Unknown]
  - Mania [Unknown]
  - Product use issue [Unknown]
